FAERS Safety Report 8190225 (Version 2)
Quarter: 2014Q1

REPORT INFORMATION
  Report Type: Report from Study
  Country: DZ (occurrence: DZ)
  Receive Date: 20111019
  Receipt Date: 20140206
  Transmission Date: 20141002
  Serious: Yes (Death, Other)
  Sender: FDA-Public Use
  Company Number: DZ-ROCHE-1002564

PATIENT
  Age: 66 Year
  Sex: Female

DRUGS (3)
  1. TRASTUZUMAB [Suspect]
     Indication: HER-2 POSITIVE BREAST CANCER
     Route: 042
     Dates: start: 20101027
  2. LEVOTHYROX [Concomitant]
  3. SECTRAL [Concomitant]
     Indication: HYPERTENSION

REACTIONS (6)
  - Cardiac arrest [Fatal]
  - Disease progression [Fatal]
  - Malnutrition [Fatal]
  - Metastases to central nervous system [Fatal]
  - Headache [Fatal]
  - Coma [Unknown]
